FAERS Safety Report 19786753 (Version 2)
Quarter: 2022Q4

REPORT INFORMATION
  Report Type: Spontaneous
  Country: DE (occurrence: DE)
  Receive Date: 20210903
  Receipt Date: 20221005
  Transmission Date: 20230113
  Serious: Yes (Hospitalization)
  Sender: FDA-Public Use
  Company Number: DE-ADRED-06335-02

PATIENT
  Age: 79 Year
  Sex: Female

DRUGS (10)
  1. HYDROCHLOROTHIAZIDE\METOPROLOL [Suspect]
     Active Substance: HYDROCHLOROTHIAZIDE\METOPROLOL
     Indication: Product used for unknown indication
     Dosage: UNK (12.5|95 MG, 0.5-0-0-0)
     Route: 065
  2. EDOXABAN [Suspect]
     Active Substance: EDOXABAN
     Indication: Product used for unknown indication
     Dosage: UNK (60 MG 1-0-0-0)
     Route: 065
  3. ASPIRIN [Suspect]
     Active Substance: ASPIRIN
     Indication: Product used for unknown indication
     Dosage: UNK (100 MG 1-0-0-0)
     Route: 065
  4. IRBESARTAN [Concomitant]
     Active Substance: IRBESARTAN
     Dosage: UNK (150 MG  0-0-1-0)
     Route: 065
  5. NITRENDIPINE [Concomitant]
     Active Substance: NITRENDIPINE
     Dosage: UNK (10 MG)
     Route: 065
  6. ATORVASTATIN [Concomitant]
     Active Substance: ATORVASTATIN
     Dosage: UNK (10 MG 0-0-1-0)
     Route: 065
  7. PANTOPRAZOLE SODIUM [Concomitant]
     Active Substance: PANTOPRAZOLE SODIUM
     Dosage: 40 MILLIGRAM
     Route: 065
  8. IBUPROFEN [Concomitant]
     Active Substance: IBUPROFEN
     Dosage: 400 MILLIGRAM
     Route: 065
  9. VALERIAN [Concomitant]
     Active Substance: VALERIAN
     Dosage: UNK
     Route: 065
  10. METAMIZOL [Concomitant]
     Active Substance: METAMIZOLE SODIUM
     Dosage: 500 MILLIGRAM
     Route: 065

REACTIONS (11)
  - Decreased appetite [Recovering/Resolving]
  - Pain in extremity [Recovering/Resolving]
  - Renal impairment [Recovering/Resolving]
  - Electrolyte imbalance [Recovering/Resolving]
  - Product prescribing error [Unknown]
  - General physical health deterioration [Recovering/Resolving]
  - Abdominal pain [Recovering/Resolving]
  - Anaemia [Recovering/Resolving]
  - Haematemesis [Recovering/Resolving]
  - Haematuria [Recovering/Resolving]
  - Dysuria [Recovering/Resolving]
